FAERS Safety Report 4742089-6 (Version None)
Quarter: 2005Q3

REPORT INFORMATION
  Report Type: 
  Country: None (occurrence: None)
  Receive Date: 20050808
  Receipt Date: 20050707
  Transmission Date: 20060218
  Serious: Yes (Hospitalization)
  Sender: FDA-Public Use
  Company Number: S05-FRA-02457-01

PATIENT
  Age: 41 Year
  Sex: Male

DRUGS (1)
  1. CITALOPRAM HYDROBROMIDE [Suspect]

REACTIONS (2)
  - CYTOLYTIC HEPATITIS [None]
  - HEPATITIS [None]
